FAERS Safety Report 13370211 (Version 1)
Quarter: 2017Q1

REPORT INFORMATION
  Report Type: Spontaneous
  Country: US (occurrence: US)
  Receive Date: 20170324
  Receipt Date: 20170324
  Transmission Date: 20170429
  Serious: Yes (Other)
  Sender: FDA-Public Use
  Company Number: US-ROCHE-1029557

PATIENT
  Sex: Female
  Weight: 55 kg

DRUGS (1)
  1. XOLAIR [Suspect]
     Active Substance: OMALIZUMAB
     Indication: ASTHMA
     Dosage: FORM: SOLUTION IN SYRINGE
     Route: 058
     Dates: start: 201110

REACTIONS (1)
  - Breast cancer [Unknown]
